FAERS Safety Report 15103285 (Version 1)
Quarter: 2018Q3

REPORT INFORMATION
  Report Type: Spontaneous
  Country: GB (occurrence: GB)
  Receive Date: 20180703
  Receipt Date: 20180703
  Transmission Date: 20181010
  Serious: Yes (Hospitalization)
  Sender: FDA-Public Use
  Company Number: GB-PFIZER INC-2018267734

PATIENT
  Sex: Male

DRUGS (2)
  1. AMIODARONE HCL [Suspect]
     Active Substance: AMIODARONE HYDROCHLORIDE
     Dosage: UNK
     Route: 065
  2. NEBILET [Interacting]
     Active Substance: NEBIVOLOL
     Dosage: UNK
     Route: 065

REACTIONS (2)
  - Total lung capacity decreased [Unknown]
  - Labelled drug-drug interaction medication error [Unknown]
